FAERS Safety Report 21812081 (Version 1)
Quarter: 2023Q1

REPORT INFORMATION
  Report Type: Other
  Country: IN (occurrence: None)
  Receive Date: 20230103
  Receipt Date: 20230103
  Transmission Date: 20230418
  Serious: Yes (Death, Hospitalization)
  Sender: FDA-Public Use
  Company Number: IN-ROCHE-3255271

PATIENT
  Age: 46 Year
  Sex: Male

DRUGS (5)
  1. MYCOPHENOLATE MOFETIL [Suspect]
     Active Substance: MYCOPHENOLATE MOFETIL
     Indication: Renal transplant
     Route: 048
     Dates: start: 20210202, end: 20220928
  2. PREDNISOLONE [Concomitant]
     Active Substance: PREDNISOLONE
  3. DILTIAZEM [Concomitant]
     Active Substance: DILTIAZEM
  4. SEPTRAN [Concomitant]
  5. ARKAMIN [Concomitant]

REACTIONS (3)
  - Death [Fatal]
  - Dyspnoea [Fatal]
  - Blood creatinine increased [Not Recovered/Not Resolved]

NARRATIVE: CASE EVENT DATE: 20220928
